FAERS Safety Report 8758713 (Version 1)
Quarter: 2012Q4

REPORT INFORMATION
  Report Type: Spontaneous
  Country: US (occurrence: None)
  Receive Date: 20120828
  Receipt Date: 20120828
  Transmission Date: 20130627
  Serious: No
  Sender: FDA-Public Use
  Company Number: None

PATIENT
  Age: 73 Year
  Sex: Female

DRUGS (10)
  1. REVLIMID [Suspect]
     Route: 048
     Dates: start: 201201, end: 201204
  2. REVLIMID [Suspect]
     Route: 048
     Dates: start: 201206
  3. DEXAMETHASONE [Concomitant]
  4. ENOXAPARIN [Concomitant]
  5. WARFARIN [Concomitant]
  6. ACYCLOVIR [Concomitant]
  7. HCTZ [Concomitant]
  8. FUROSEMIDE [Concomitant]
  9. LISINOPRIL [Concomitant]
  10. SIMVASTATIN [Concomitant]

REACTIONS (3)
  - Upper respiratory tract infection [None]
  - Liver function test abnormal [None]
  - Neutropenia [None]
